FAERS Safety Report 8853429 (Version 1)
Quarter: 2012Q4

REPORT INFORMATION
  Report Type: 
  Country: US (occurrence: US)
  Receive Date: 20121022
  Receipt Date: 20121022
  Transmission Date: 20130627
  Serious: Yes (Other)
  Sender: FDA-Public Use
  Company Number: US-GLAXOSMITHKLINE-A0992811A

PATIENT
  Age: 31 Year
  Sex: Female

DRUGS (1)
  1. LAMOTRIGINE [Suspect]
     Indication: DEPRESSION
     Dosage: 12.5MG In the morning
     Route: 048
     Dates: start: 20120620, end: 20120716

REACTIONS (5)
  - Lymphadenopathy [Recovered/Resolved]
  - Neck pain [Recovered/Resolved]
  - Headache [Recovered/Resolved]
  - Hepatic enzyme increased [Recovered/Resolved]
  - Blood lactate dehydrogenase increased [Recovered/Resolved]
